FAERS Safety Report 7771899-6 (Version None)
Quarter: 2011Q3

REPORT INFORMATION
  Report Type: 
  Country: None (occurrence: None)
  Receive Date: 20110922
  Receipt Date: 20100909
  Transmission Date: 20111222
  Serious: No
  Sender: FDA-Public Use
  Company Number: US-ASTRAZENECA-2010SE42422

PATIENT
  Age: 46 Year
  Sex: Female
  Weight: 81.6 kg

DRUGS (3)
  1. SEROQUEL XR [Suspect]
     Indication: BIPOLAR DISORDER
     Route: 048
  2. IBUPROFEN [Concomitant]
  3. TYLENOL PM [Concomitant]

REACTIONS (2)
  - HYPERCHOLESTEROLAEMIA [None]
  - MUSCULAR WEAKNESS [None]
